FAERS Safety Report 7128884-7 (Version None)
Quarter: 2010Q4

REPORT INFORMATION
  Report Type: 
  Country: None (occurrence: None)
  Receive Date: 20101130
  Receipt Date: 20101117
  Transmission Date: 20110411
  Serious: Yes (Hospitalization)
  Sender: FDA-Public Use
  Company Number: A0832742A

PATIENT
  Age: 46 Year
  Sex: Female
  Weight: 126.4 kg

DRUGS (8)
  1. AVANDIA [Suspect]
     Dosage: 4MG TWICE PER DAY
     Route: 048
     Dates: start: 20011201, end: 20070101
  2. AVANDAMET [Suspect]
     Route: 048
     Dates: start: 20041001, end: 20060101
  3. GLUCOPHAGE [Concomitant]
  4. ATENOLOL [Concomitant]
  5. VYTORIN [Concomitant]
  6. LIPITOR [Concomitant]
  7. TRIAMTERENE [Concomitant]
  8. HYDROCHLOROTHIAZIDE [Concomitant]

REACTIONS (2)
  - ARTERIOSCLEROSIS CORONARY ARTERY [None]
  - MYOCARDIAL INFARCTION [None]
